FAERS Safety Report 8287111-8 (Version None)
Quarter: 2012Q2

REPORT INFORMATION
  Report Type: 
  Country: None (occurrence: None)
  Receive Date: 20120416
  Receipt Date: 20120410
  Transmission Date: 20120825
  Serious: Yes (Other)
  Sender: FDA-Public Use
  Company Number: IT-BAYER-201037457GPV

PATIENT
  Age: 75 Year
  Sex: Female
  Weight: 62 kg

DRUGS (4)
  1. NEXAVAR [Suspect]
     Indication: HEPATIC NEOPLASM MALIGNANT
     Route: 048
     Dates: start: 20091114, end: 20100712
  2. INDERAL [Concomitant]
     Indication: PORTAL HYPERTENSION
     Dosage: 10 MG (DAILY DOSE), , ORAL
     Route: 048
     Dates: start: 20090101, end: 20100801
  3. LANSOPRAZOLE [Concomitant]
     Indication: VARICES OESOPHAGEAL
     Dosage: 30 MG (DAILY DOSE), ,
     Dates: start: 20090101, end: 20100801
  4. INDERAL [Concomitant]
     Indication: VARICES OESOPHAGEAL

REACTIONS (2)
  - ASCITES [None]
  - HEPATIC FAILURE [None]
